FAERS Safety Report 12508642 (Version 1)
Quarter: 2016Q2

REPORT INFORMATION
  Report Type: Spontaneous
  Country: GB (occurrence: GB)
  Receive Date: 20160629
  Receipt Date: 20160629
  Transmission Date: 20160815
  Serious: Yes (Other)
  Sender: FDA-Public Use
  Company Number: GB-MYLANLABS-2016M1026894

PATIENT

DRUGS (3)
  1. ETOPOSIDE. [Suspect]
     Active Substance: ETOPOSIDE
     Indication: TESTICULAR GERM CELL TUMOUR
     Route: 065
  2. BLEOMYCIN [Suspect]
     Active Substance: BLEOMYCIN SULFATE
     Indication: TESTICULAR GERM CELL TUMOUR
     Route: 030
  3. CISPLATIN. [Suspect]
     Active Substance: CISPLATIN
     Indication: TESTICULAR GERM CELL TUMOUR
     Route: 065

REACTIONS (6)
  - Cerebral venous thrombosis [Recovering/Resolving]
  - Vomiting [Unknown]
  - Thrombocytopenia [Unknown]
  - Diarrhoea [Unknown]
  - Azotaemia [Unknown]
  - Hyponatraemia [Unknown]
